FAERS Safety Report 8641470 (Version 2)
Quarter: 2012Q4

REPORT INFORMATION
  Report Type: Spontaneous
  Country: US (occurrence: None)
  Receive Date: 20120613
  Receipt Date: 20120914
  Transmission Date: 20130627
  Serious: Yes (Other)
  Sender: FDA-Public Use
  Company Number: 2012AP001659

PATIENT

DRUGS (1)
  1. AMIODARONE HYDROCHLORIDE [Suspect]
     Indication: PRODUCT USED FOR UNKNOWN INDICATION

REACTIONS (3)
  - PULMONARY TOXICITY [None]
  - EOSINOPHILIC PNEUMONIA CHRONIC [None]
  - LYMPHOID TISSUE HYPERPLASIA [None]
